FAERS Safety Report 10661768 (Version 1)
Quarter: 2014Q4

REPORT INFORMATION
  Report Type: Spontaneous
  Country: FR (occurrence: None)
  Receive Date: 20141216
  Receipt Date: 20141216
  Transmission Date: 20150529
  Serious: Yes (Hospitalization)
  Sender: FDA-Public Use
  Company Number: NSR_01726_2014

PATIENT
  Sex: Male

DRUGS (2)
  1. BROMAZEPAM [Concomitant]
     Active Substance: BROMAZEPAM
  2. BACLOFEN. [Suspect]
     Active Substance: BACLOFEN
     Indication: ALCOHOLISM
     Dates: start: 20130412

REACTIONS (7)
  - Insomnia [None]
  - Abnormal behaviour [None]
  - Diplegia [None]
  - Delirium [None]
  - Somatic delusion [None]
  - Hyperhidrosis [None]
  - Sluggishness [None]
